FAERS Safety Report 6545028-0 (Version None)
Quarter: 2010Q1

REPORT INFORMATION
  Report Type: 
  Country: None (occurrence: None)
  Receive Date: 20100121
  Receipt Date: 20100106
  Transmission Date: 20100710
  Serious: Yes (Hospitalization)
  Sender: FDA-Public Use
  Company Number: B0477914A

PATIENT
  Sex: Male

DRUGS (6)
  1. ARIXTRA [Suspect]
     Indication: DRUG USE FOR UNKNOWN INDICATION
     Route: 058
     Dates: start: 20070601, end: 20070627
  2. SKENAN [Concomitant]
     Indication: DRUG USE FOR UNKNOWN INDICATION
  3. ANTINEOPLASTIC DRUGS [Concomitant]
     Dates: start: 20070521, end: 20070607
  4. ALDACTONE [Concomitant]
     Indication: DRUG USE FOR UNKNOWN INDICATION
     Dates: start: 20070519, end: 20070615
  5. LASIX [Concomitant]
     Dates: start: 20040101
  6. CARDENSIEL [Concomitant]
     Dates: start: 20040101

REACTIONS (11)
  - CELL DEATH [None]
  - CHEILITIS [None]
  - EOSINOPHILIA [None]
  - GLOSSITIS [None]
  - HYPERSENSITIVITY [None]
  - JAUNDICE CHOLESTATIC [None]
  - LEUKOCYTOCLASTIC VASCULITIS [None]
  - PALMAR-PLANTAR ERYTHRODYSAESTHESIA SYNDROME [None]
  - PURPURA [None]
  - RASH MACULO-PAPULAR [None]
  - SKIN LESION [None]
